FAERS Safety Report 15153233 (Version 1)
Quarter: 2018Q3

REPORT INFORMATION
  Report Type: Spontaneous
  Country: US (occurrence: US)
  Receive Date: 20180717
  Receipt Date: 20180717
  Transmission Date: 20181010
  Serious: No
  Sender: FDA-Public Use
  Company Number: US-ELI_LILLY_AND_COMPANY-US201807003640

PATIENT
  Sex: Female

DRUGS (2)
  1. ADCIRCA [Suspect]
     Active Substance: TADALAFIL
     Indication: PULMONARY HYPERTENSION
     Dosage: 30 MG, DAILY
     Route: 065
     Dates: start: 201701
  2. ADCIRCA [Suspect]
     Active Substance: TADALAFIL
     Dosage: 32 MG, DAILY
     Route: 065

REACTIONS (3)
  - Weight increased [Unknown]
  - Wrong technique in product usage process [Unknown]
  - Blood pressure increased [Unknown]
